FAERS Safety Report 20478034 (Version 1)
Quarter: 2022Q1

REPORT INFORMATION
  Report Type: Spontaneous
  Country: AT (occurrence: None)
  Receive Date: 20220216
  Receipt Date: 20220216
  Transmission Date: 20220423
  Serious: Yes (Death, Hospitalization, Other)
  Sender: FDA-Public Use
  Company Number: AT-ROCHE-3025435

PATIENT
  Age: 17 Year
  Sex: Male

DRUGS (9)
  1. RIVOTRIL [Suspect]
     Active Substance: CLONAZEPAM
     Indication: Depression
     Route: 065
     Dates: start: 20210917
  2. RIVOTRIL [Suspect]
     Active Substance: CLONAZEPAM
     Indication: Agitation
  3. TOZINAMERAN [Suspect]
     Active Substance: TOZINAMERAN
     Indication: COVID-19 immunisation
     Route: 065
     Dates: start: 20210528
  4. TOZINAMERAN [Suspect]
     Active Substance: TOZINAMERAN
     Route: 065
     Dates: start: 20210702, end: 20210702
  5. METHADONE [Suspect]
     Active Substance: METHADONE HYDROCHLORIDE
     Indication: Product used for unknown indication
     Dosage: 1 ML DAILY (PRESCRIPTION 3 ML PER DAY)
     Route: 065
     Dates: start: 202109
  6. CIPRALEX [Concomitant]
     Active Substance: ESCITALOPRAM OXALATE
  7. PREGABALIN [Concomitant]
     Active Substance: PREGABALIN
  8. RITALIN [Concomitant]
     Active Substance: METHYLPHENIDATE HYDROCHLORIDE
  9. MORPHINE SULFATE [Concomitant]
     Active Substance: MORPHINE SULFATE

REACTIONS (9)
  - Pneumococcal sepsis [Fatal]
  - Pneumonia pneumococcal [Fatal]
  - Cardiac failure [Fatal]
  - Myocarditis [Not Recovered/Not Resolved]
  - Gastrointestinal hypomotility [Not Recovered/Not Resolved]
  - Unresponsive to stimuli [Not Recovered/Not Resolved]
  - Suicidal ideation [Unknown]
  - Paranoia [Unknown]
  - Product use in unapproved indication [Unknown]

NARRATIVE: CASE EVENT DATE: 20210901
